FAERS Safety Report 17042692 (Version 1)
Quarter: 2019Q4

REPORT INFORMATION
  Report Type: Other
  Country: CA (occurrence: CA)
  Receive Date: 20191118
  Receipt Date: 20191118
  Transmission Date: 20200122
  Serious: Yes (Other)
  Sender: FDA-Public Use
  Company Number: CA-PFIZER INC-2019495059

PATIENT

DRUGS (2)
  1. OXALIPLATIN. [Suspect]
     Active Substance: OXALIPLATIN
     Indication: COLON CANCER METASTATIC
     Dosage: 130 MG/M2, UNK (1 EVERY 21 DAY(S))
     Route: 042
  2. CAPECITABINE. [Suspect]
     Active Substance: CAPECITABINE
     Indication: COLON CANCER METASTATIC
     Dosage: 1000 MG/M2, 2X/DAY
     Route: 048

REACTIONS (11)
  - Bone marrow failure [Unknown]
  - Diarrhoea [Unknown]
  - Hypersensitivity [Unknown]
  - Nausea [Unknown]
  - Acute kidney injury [Unknown]
  - Dehydration [Unknown]
  - Palmar-plantar erythrodysaesthesia syndrome [Unknown]
  - Fatigue [Unknown]
  - Mucosal inflammation [Unknown]
  - Neuropathy peripheral [Unknown]
  - Decreased appetite [Unknown]
